FAERS Safety Report 23354964 (Version 1)
Quarter: 2024Q1

REPORT INFORMATION
  Report Type: Report from Study
  Country: US (occurrence: US)
  Receive Date: 20240101
  Receipt Date: 20240101
  Transmission Date: 20240410
  Serious: Yes (Hospitalization, Other)
  Sender: FDA-Public Use
  Company Number: US-ABBVIE-5566746

PATIENT
  Sex: Female

DRUGS (1)
  1. SKYRIZI [Suspect]
     Active Substance: RISANKIZUMAB-RZAA
     Indication: Psoriasis
     Route: 058
     Dates: end: 202305

REACTIONS (4)
  - Cystitis [Recovering/Resolving]
  - COVID-19 [Recovered/Resolved]
  - Psoriasis [Recovering/Resolving]
  - COVID-19 [Recovering/Resolving]
